FAERS Safety Report 20582484 (Version 2)
Quarter: 2022Q1

REPORT INFORMATION
  Report Type: Report from Study
  Country: US (occurrence: US)
  Receive Date: 20220311
  Receipt Date: 20220317
  Transmission Date: 20220423
  Serious: Yes (Death, Hospitalization)
  Sender: FDA-Public Use
  Company Number: US-ASTELLAS-2021US042559

PATIENT
  Age: 50 Year
  Sex: Male
  Weight: 44 kg

DRUGS (5)
  1. ENFORTUMAB VEDOTIN [Suspect]
     Active Substance: ENFORTUMAB VEDOTIN
     Indication: Head and neck cancer metastatic
     Dosage: 1 MG/KG, CYCLIC (DAYS 1, 8, 15 OF 28 DAY CYCLE)
     Route: 042
     Dates: start: 20210708, end: 20211103
  2. HYDROMORPHONE [Concomitant]
     Active Substance: HYDROMORPHONE
     Indication: Pain
     Dosage: 4 MG, OTHER (6 TIMES DAILY)
     Route: 048
     Dates: start: 20210706
  3. LEVOTHYROXINE [Concomitant]
     Active Substance: LEVOTHYROXINE
     Indication: Thyroid disorder
     Dosage: 125 ?G, ONCE DAILY (ROUTE: PEG TUBE)
     Route: 050
     Dates: start: 20201229
  4. METHADONE HYDROCHLORIDE [Concomitant]
     Active Substance: METHADONE HYDROCHLORIDE
     Indication: Pain
     Dosage: 10 MG/ML (10 MG/6 ML SOLUTION), TWICE DAILY (ROUTE: PEG TUBE)
     Route: 050
     Dates: start: 20210603
  5. GABAPENTIN [Concomitant]
     Active Substance: GABAPENTIN
     Indication: Pain
     Dosage: 300 MG, THRICE DAILY (ROUTE:PEG TUBE)
     Route: 050
     Dates: start: 20210706

REACTIONS (1)
  - Hepatobiliary disease [Fatal]

NARRATIVE: CASE EVENT DATE: 20211103
